FAERS Safety Report 16112781 (Version 1)
Quarter: 2019Q1

REPORT INFORMATION
  Report Type: Spontaneous
  Country: NL (occurrence: US)
  Receive Date: 20190325
  Receipt Date: 20190325
  Transmission Date: 20190418
  Serious: Yes (Other)
  Sender: FDA-Public Use
  Company Number: NL-GILEAD-2019-0398251

PATIENT
  Age: 50 Year
  Sex: Male

DRUGS (1)
  1. YESCARTA [Suspect]
     Active Substance: AXICABTAGENE CILOLEUCEL
     Indication: NON-HODGKIN^S LYMPHOMA UNSPECIFIED HISTOLOGY AGGRESSIVE
     Dosage: UNK
     Route: 042

REACTIONS (9)
  - Asthenia [Recovered/Resolved]
  - Pyrexia [Recovered/Resolved]
  - Platelet disorder [Recovered/Resolved]
  - Viral infection [Recovered/Resolved]
  - Unevaluable event [Recovered/Resolved]
  - Gait disturbance [Recovered/Resolved]
  - Feeling abnormal [Recovered/Resolved]
  - Urinary bladder haemorrhage [Recovered/Resolved]
  - Blood test abnormal [Not Recovered/Not Resolved]
